FAERS Safety Report 21330576 (Version 1)
Quarter: 2022Q3

REPORT INFORMATION
  Report Type: Spontaneous
  Country: JP (occurrence: JP)
  Receive Date: 20220913
  Receipt Date: 20220913
  Transmission Date: 20221026
  Serious: Yes (Other)
  Sender: FDA-Public Use
  Company Number: JP-TAKEDA-2022TJP073308

PATIENT
  Age: 2 Year
  Sex: Female

DRUGS (1)
  1. MIDAZOLAM HYDROCHLORIDE [Suspect]
     Active Substance: MIDAZOLAM HYDROCHLORIDE
     Indication: Status epilepticus
     Dosage: UNK, PRN
     Route: 002

REACTIONS (3)
  - Respiratory depression [Recovered/Resolved]
  - Oxygen saturation decreased [Unknown]
  - Product use complaint [Unknown]
